FAERS Safety Report 5748717-0 (Version None)
Quarter: 2008Q2

REPORT INFORMATION
  Report Type: 
  Country: None (occurrence: None)
  Receive Date: 20080521
  Receipt Date: 20080506
  Transmission Date: 20081010
  Serious: Yes (Disabling)
  Sender: FDA-Public Use
  Company Number: 2008S1007711

PATIENT
  Age: 79 Year
  Sex: Female

DRUGS (2)
  1. VERAPAMIL [Suspect]
     Indication: HYPERTENSION
     Dosage: 120 MG;DAILY;ORAL
     Route: 048
     Dates: start: 19960101, end: 20060101
  2. NATRILIX /00340101/ (INDAPAMIDE) [Suspect]
     Indication: HYPERTENSION
     Dosage: 2.5 MG; ORAL
     Route: 048
     Dates: start: 19910101, end: 20060101

REACTIONS (2)
  - PERIPHERAL MOTOR NEUROPATHY [None]
  - PERIPHERAL SENSORY NEUROPATHY [None]
